FAERS Safety Report 7461716-6 (Version None)
Quarter: 2011Q2

REPORT INFORMATION
  Report Type: 
  Country: None (occurrence: None)
  Receive Date: 20110506
  Receipt Date: 20110408
  Transmission Date: 20111010
  Serious: Yes (Hospitalization)
  Sender: FDA-Public Use
  Company Number: US-BAYER-2011-007248

PATIENT
  Age: 25 Year
  Sex: Female
  Weight: 113 kg

DRUGS (1)
  1. YAZ [Suspect]
     Indication: CONTRACEPTION
     Dosage: UNK
     Route: 048
     Dates: start: 20090501, end: 20100301

REACTIONS (4)
  - DYSPNOEA [None]
  - BACK PAIN [None]
  - PAIN [None]
  - PULMONARY EMBOLISM [None]
